FAERS Safety Report 21178951 (Version 1)
Quarter: 2022Q3

REPORT INFORMATION
  Report Type: Spontaneous
  Country: US (occurrence: US)
  Receive Date: 20220805
  Receipt Date: 20220805
  Transmission Date: 20221027
  Serious: No
  Sender: FDA-Public Use
  Company Number: US-TAKEDA-2022TUS053109

PATIENT
  Age: 58 Year
  Sex: Female

DRUGS (1)
  1. HYQVIA [Suspect]
     Active Substance: HUMAN IMMUNOGLOBULIN G\HYALURONIDASE RECOMBINANT HUMAN
     Indication: Product used for unknown indication
     Route: 065

REACTIONS (2)
  - Treatment delayed [Not Recovered/Not Resolved]
  - Device programming error [Not Recovered/Not Resolved]

NARRATIVE: CASE EVENT DATE: 20220802
